FAERS Safety Report 8178981-2 (Version None)
Quarter: 2012Q1

REPORT INFORMATION
  Report Type: 
  Country: None (occurrence: None)
  Receive Date: 20120302
  Receipt Date: 20120227
  Transmission Date: 20120608
  Serious: No
  Sender: FDA-Public Use
  Company Number: US-BIOGENIDEC-2012BI007247

PATIENT
  Age: 23 Year
  Sex: Female

DRUGS (2)
  1. TRAZODONE HCL [Concomitant]
     Indication: INSOMNIA
  2. TYSABRI [Suspect]
     Indication: MULTIPLE SCLEROSIS
     Route: 042
     Dates: start: 20090831

REACTIONS (3)
  - INSOMNIA [None]
  - VOMITING [None]
  - DIARRHOEA [None]
